FAERS Safety Report 6848935-4 (Version None)
Quarter: 2010Q3

REPORT INFORMATION
  Report Type: 
  Country: None (occurrence: None)
  Receive Date: 20100716
  Receipt Date: 20070922
  Transmission Date: 20110219
  Serious: Yes (Other)
  Sender: FDA-Public Use
  Company Number: US-PFIZER INC-2007080959

PATIENT
  Sex: Female

DRUGS (4)
  1. CHANTIX [Suspect]
     Indication: EX-TOBACCO USER
     Dates: start: 20070830
  2. AMITIZA [Suspect]
     Indication: CONSTIPATION
     Dates: start: 20070830
  3. ALBUTEROL [Concomitant]
     Indication: ASTHMA
     Route: 055
  4. ZELNORM [Concomitant]
     Indication: CONSTIPATION

REACTIONS (6)
  - ABDOMINAL DISTENSION [None]
  - CONSTIPATION [None]
  - DYSGEUSIA [None]
  - HEADACHE [None]
  - MALAISE [None]
  - WEIGHT INCREASED [None]
